FAERS Safety Report 8933015 (Version 1)
Quarter: 2013Q1

REPORT INFORMATION
  Report Type: Spontaneous
  Country: US (occurrence: None)
  Receive Date: 20121127
  Receipt Date: 20121127
  Transmission Date: 20140127
  Serious: Yes (Life-Threatening, Hospitalization, Other)
  Sender: FDA-Public Use
  Company Number: None

PATIENT
  Age: 57 Year
  Sex: Male
  Weight: 82.3 kg

DRUGS (2)
  1. FERAHEME (FERUMOXYTOL) [Suspect]
     Indication: IRON DEFICIENCY ANAEMIA
     Dates: start: 20121106, end: 20121115
  2. DIPHENHYDRAMINE [Concomitant]

REACTIONS (4)
  - Flushing [None]
  - Dyspnoea [None]
  - Chills [None]
  - Heart rate increased [None]
